FAERS Safety Report 26023802 (Version 1)
Quarter: 2025Q4

REPORT INFORMATION
  Report Type: Spontaneous
  Country: EG (occurrence: EG)
  Receive Date: 20251111
  Receipt Date: 20251111
  Transmission Date: 20260118
  Serious: Yes (Hospitalization, Other)
  Sender: HIKMA
  Company Number: EG-HIKMA PHARMACEUTICALS-EG-H14001-25-11755

PATIENT
  Age: 62 Year
  Sex: Male
  Weight: 51 kg

DRUGS (6)
  1. GEMCITABINE HYDROCHLORIDE [Suspect]
     Active Substance: GEMCITABINE HYDROCHLORIDE
     Indication: Lung neoplasm malignant
     Dosage: 2 GRAM OVER 60 MINUTES, ON DAY 1 AND 8, EVERY 21 DAYS
     Route: 041
     Dates: start: 20250908
  2. CISPLATIN [Suspect]
     Active Substance: CISPLATIN
     Indication: Lung neoplasm malignant
     Dosage: 37.5 MILLIGRAM OVER 60 MINUTES, ON DAYS 1, 2, AND 3 ,EVERY 21 DAYS
     Route: 041
     Dates: start: 20250908
  3. DEXAMETHASONE [Concomitant]
     Active Substance: DEXAMETHASONE
     Indication: Chemotherapy side effect prophylaxis
     Dosage: UNK, GIVEN OVER 30 MINUTES PRIOR TO CHEMOTHERAPY EACH DAY
     Route: 042
  4. GRANITRYL [Concomitant]
     Indication: Chemotherapy side effect prophylaxis
     Dosage: UNK, GIVEN OVER 30 MINUTES PRIOR TO CHEMOTHERAPY EACH DAY
     Route: 042
  5. LASIPHAR [Concomitant]
     Indication: Fluid replacement
     Dosage: UNK, OVER 1 HOUR
     Route: 041
  6. MAGNESIUM SULFATE;POTASSIUM CHLORIDE [Concomitant]
     Indication: Fluid replacement
     Dosage: UNK, OVER 2 HOURS BEFORE DAY ONE
     Route: 041

REACTIONS (7)
  - Febrile neutropenia [Not Recovered/Not Resolved]
  - Hypoalbuminaemia [Not Recovered/Not Resolved]
  - Thrombocytopenia [Not Recovered/Not Resolved]
  - Anaemia [Not Recovered/Not Resolved]
  - Leukopenia [Not Recovered/Not Resolved]
  - Vomiting [Recovered/Resolved]
  - Diarrhoea [Recovered/Resolved]

NARRATIVE: CASE EVENT DATE: 20250917
